FAERS Safety Report 16599326 (Version 1)
Quarter: 2019Q3

REPORT INFORMATION
  Report Type: Spontaneous
  Country: IE (occurrence: IE)
  Receive Date: 20190719
  Receipt Date: 20190719
  Transmission Date: 20191004
  Serious: Yes (Hospitalization)
  Sender: FDA-Public Use
  Company Number: IE-BAXTER-2019BAX013772

PATIENT
  Age: 76 Year
  Sex: Male

DRUGS (4)
  1. CITRATE BUFFER [Suspect]
     Active Substance: SODIUM CITRATE
     Indication: MEDICATION DILUTION
     Dosage: PH 6.5-7.5
     Route: 042
     Dates: start: 20190705, end: 201907
  2. FLUCLOXACILLIN [Suspect]
     Active Substance: FLUCLOXACILLIN
     Indication: PRODUCT USED FOR UNKNOWN INDICATION
     Route: 042
     Dates: start: 20190705, end: 201907
  3. WATER FOR INJECTION [Suspect]
     Active Substance: WATER
     Indication: MEDICATION DILUTION
     Route: 042
     Dates: start: 20190705, end: 201907
  4. SODIUM CHLORIDE 0.9% INTRAVENOUS INFUSION BP [Suspect]
     Active Substance: SODIUM CHLORIDE
     Indication: MEDICATION DILUTION
     Route: 042
     Dates: start: 20190705, end: 201907

REACTIONS (2)
  - Catheter site paraesthesia [Recovered/Resolved]
  - Catheter site hypoaesthesia [Recovered/Resolved]

NARRATIVE: CASE EVENT DATE: 20190705
